FAERS Safety Report 20814877 (Version 3)
Quarter: 2022Q3

REPORT INFORMATION
  Report Type: Spontaneous
  Country: US (occurrence: US)
  Receive Date: 20220511
  Receipt Date: 20220906
  Transmission Date: 20221027
  Serious: Yes (Hospitalization)
  Sender: FDA-Public Use
  Company Number: US-PFIZER INC-202200680096

PATIENT
  Age: 66 Year
  Sex: Male
  Weight: 56.25 kg

DRUGS (3)
  1. VFEND [Suspect]
     Active Substance: VORICONAZOLE
     Indication: Aspergillus infection
     Dosage: 3 DF, 2X/DAY, [3 PILLS TWICE DAY]
  2. VFEND [Suspect]
     Active Substance: VORICONAZOLE
     Dosage: 4 DF, 2X/DAY, [50MG 4 TABLETS TWICE A DAY BY MOUTH]
     Route: 048
  3. VFEND [Suspect]
     Active Substance: VORICONAZOLE
     Dosage: 200 MG

REACTIONS (7)
  - Pyrexia [Unknown]
  - Enteritis [Unknown]
  - Illness [Unknown]
  - Febrile neutropenia [Unknown]
  - White blood cell count decreased [Unknown]
  - Neutrophil count decreased [Unknown]
  - Product prescribing error [Unknown]
